FAERS Safety Report 6231860-X (Version None)
Quarter: 2009Q2

REPORT INFORMATION
  Report Type: 
  Country: None (occurrence: None)
  Receive Date: 20090612
  Receipt Date: 20090612
  Transmission Date: 20091009
  Serious: Yes (Hospitalization)
  Sender: FDA-Public Use
  Company Number: None

PATIENT
  Sex: Female
  Weight: 49.8957 kg

DRUGS (11)
  1. SYMBYAX [Suspect]
     Indication: BIPOLAR I DISORDER
     Dosage: 3 MG/25MG QD PO
     Route: 048
     Dates: start: 20080303, end: 20080309
  2. ZYPREXA [Suspect]
     Indication: BIPOLAR DISORDER
     Dosage: 5 MG QD PO
     Route: 048
     Dates: start: 20080310, end: 20080331
  3. ZYPREXA [Suspect]
     Indication: DEPRESSION
     Dosage: 5 MG QD PO
     Route: 048
     Dates: start: 20080310, end: 20080331
  4. ZYPREXA [Suspect]
     Indication: MANIA
     Dosage: 5 MG QD PO
     Route: 048
     Dates: start: 20080310, end: 20080331
  5. ZYPREXA [Suspect]
     Indication: PSYCHOTIC DISORDER
     Dosage: 5 MG QD PO
     Route: 048
     Dates: start: 20080310, end: 20080331
  6. ZYPREXA [Suspect]
     Indication: SCHIZOPHRENIA
     Dosage: 5 MG QD PO
     Route: 048
     Dates: start: 20080310, end: 20080331
  7. FOCALIN [Concomitant]
  8. CLONIDINE [Concomitant]
  9. TRAZODONE HCL [Concomitant]
  10. TRILEPTAL [Concomitant]
  11. LEXAPRO [Concomitant]

REACTIONS (2)
  - MALAISE [None]
  - MANIA [None]
